FAERS Safety Report 7979160-1 (Version None)
Quarter: 2011Q4

REPORT INFORMATION
  Report Type: 
  Country: None (occurrence: None)
  Receive Date: 20111129
  Receipt Date: 20110920
  Transmission Date: 20120403
  Serious: Yes (Death, Hospitalization)
  Sender: FDA-Public Use
  Company Number: PHEH2011US04654

PATIENT
  Sex: Female

DRUGS (4)
  1. SYNTHROID [Concomitant]
  2. METOPROLOL TARTRATE [Concomitant]
  3. HYDROCHOLOROT [Concomitant]
  4. AFINITOR [Suspect]
     Indication: RENAL CELL CARCINOMA
     Dosage: 1 DF, ONE TABLET EVERY DAY

REACTIONS (2)
  - NEOPLASM MALIGNANT [None]
  - NEOPLASM PROGRESSION [None]
